FAERS Safety Report 7807186-7 (Version None)
Quarter: 2011Q4

REPORT INFORMATION
  Report Type: 
  Country: None (occurrence: None)
  Receive Date: 20111011
  Receipt Date: 20111006
  Transmission Date: 20120403
  Serious: Yes (Death)
  Sender: FDA-Public Use
  Company Number: PHHY2011MX88873

PATIENT
  Sex: Male

DRUGS (5)
  1. GALVUS MET [Concomitant]
     Indication: DIABETES MELLITUS
     Dosage: 1 DF, UNK
     Dates: start: 20110202, end: 20110921
  2. CLINDAMYCIN [Concomitant]
     Indication: DIABETIC FOOT INFECTION
  3. DIOVAN HCT [Suspect]
     Indication: HYPERTENSION
     Dosage: 160 MG VALS AND 12.5 MG HYDRO,1 DF
     Dates: start: 20110202, end: 20110921
  4. CEFTRIAXONE [Concomitant]
     Indication: DIABETIC FOOT INFECTION
     Dosage: UNK UKN, UNK
  5. INSULINE [Concomitant]
     Dosage: UNK UKN, UNK

REACTIONS (1)
  - DIABETIC COMPLICATION [None]
